FAERS Safety Report 14381475 (Version 3)
Quarter: 2018Q4

REPORT INFORMATION
  Report Type: Spontaneous
  Country: BR (occurrence: BR)
  Receive Date: 20180112
  Receipt Date: 20181012
  Transmission Date: 20190204
  Serious: No
  Sender: FDA-Public Use
  Company Number: BR-IPSEN BIOPHARMACEUTICALS, INC.-2016-09723

PATIENT
  Age: 48 Year
  Sex: Male

DRUGS (8)
  1. SOMATULINE LP [Suspect]
     Active Substance: LANREOTIDE ACETATE
     Indication: ACROMEGALY
     Dosage: 120 MG
     Route: 030
     Dates: start: 201512
  2. CALCIUM + D [Suspect]
     Active Substance: CALCIUM\VITAMIN D
     Indication: HYPOTHYROIDISM
     Route: 048
     Dates: start: 2008
  3. LOSARTAN. [Concomitant]
     Active Substance: LOSARTAN
     Indication: HYPERTENSION
     Route: 048
  4. LEVOTHYROXINE. [Concomitant]
     Active Substance: LEVOTHYROXINE
     Indication: HORMONE REPLACEMENT THERAPY
     Route: 048
     Dates: start: 2008
  5. ATENOLOL. [Suspect]
     Active Substance: ATENOLOL
     Indication: HYPERTENSION
     Route: 048
  6. GLIFAGE [Concomitant]
     Active Substance: METFORMIN HYDROCHLORIDE
     Indication: DIABETES MELLITUS
     Route: 048
     Dates: start: 2016
  7. AMLODIPINE [Concomitant]
     Active Substance: AMLODIPINE BESYLATE
     Indication: HYPERTENSION
     Route: 048
  8. CALCITRIOL. [Concomitant]
     Active Substance: CALCITRIOL
     Indication: MINERAL SUPPLEMENTATION
     Route: 048
     Dates: start: 2008

REACTIONS (19)
  - Breath odour [Recovered/Resolved]
  - Inappropriate schedule of product administration [Unknown]
  - Product administered at inappropriate site [Unknown]
  - Flatulence [Recovered/Resolved]
  - Abdominal distension [Recovered/Resolved]
  - Pyrexia [Recovered/Resolved]
  - Faeces discoloured [Recovered/Resolved]
  - Prostatomegaly [Recovering/Resolving]
  - Incorrect route of product administration [Unknown]
  - Hypersensitivity [Recovering/Resolving]
  - Faeces discoloured [Recovered/Resolved]
  - Headache [Recovering/Resolving]
  - Urinary tract infection [Recovering/Resolving]
  - Mass [Recovering/Resolving]
  - Asthenia [Recovering/Resolving]
  - Nephrolithiasis [Unknown]
  - Abdominal distension [Recovered/Resolved]
  - Drug interaction [Unknown]
  - Faeces discoloured [Recovered/Resolved]

NARRATIVE: CASE EVENT DATE: 201608
